FAERS Safety Report 5499436-X (Version None)
Quarter: 2007Q4

REPORT INFORMATION
  Report Type: 
  Country: None (occurrence: None)
  Receive Date: 20071026
  Receipt Date: 20071023
  Transmission Date: 20080405
  Serious: Yes (Hospitalization)
  Sender: FDA-Public Use
  Company Number: PHFR2007GB03114

PATIENT
  Age: 46 Year
  Sex: Male

DRUGS (6)
  1. CLOFIBRATE [Concomitant]
     Dosage: 100 MG/DAY
     Route: 048
  2. GLIMEPIRIDE [Concomitant]
     Dosage: 2 MG/DAY
     Route: 048
  3. METFORMIN [Concomitant]
     Dosage: 850 MG/DAY
     Route: 048
  4. RAMIPRIL [Concomitant]
     Dosage: 1.25 MG/DAY
     Route: 048
  5. VITAMINS [Concomitant]
     Dosage: 1 CAPSULE/DAY
     Route: 048
  6. TERBINAFINE HYDROCHLORIDE [Suspect]
     Indication: TINEA PEDIS
     Dosage: 250 MG/DAY
     Route: 048
     Dates: start: 20070825, end: 20070926

REACTIONS (3)
  - PSORIASIS [None]
  - SKIN EXFOLIATION [None]
  - VASCULITIC RASH [None]
